FAERS Safety Report 10959057 (Version 1)
Quarter: 2015Q1

REPORT INFORMATION
  Report Type: Spontaneous
  Country: US (occurrence: US)
  Receive Date: 20150327
  Receipt Date: 20150327
  Transmission Date: 20150721
  Serious: Yes (Other)
  Sender: FDA-Public Use
  Company Number: US-ROCHE-1555262

PATIENT
  Age: 52 Year
  Sex: Female

DRUGS (21)
  1. CARBOPLATIN. [Concomitant]
     Active Substance: CARBOPLATIN
     Indication: OVARIAN CANCER
     Route: 065
     Dates: start: 201308, end: 201404
  2. TAXOL [Concomitant]
     Active Substance: PACLITAXEL
     Dosage: ALONG WITH CISPLATIN
     Route: 065
     Dates: start: 201411, end: 201412
  3. CISPLATIN. [Concomitant]
     Active Substance: CISPLATIN
     Dosage: GIVEN WITH TAXOL
     Route: 065
     Dates: start: 200803, end: 200806
  4. GEMCITABINE [Concomitant]
     Active Substance: GEMCITABINE\GEMCITABINE HYDROCHLORIDE
     Route: 065
     Dates: start: 201501, end: 201502
  5. CISPLATIN. [Concomitant]
     Active Substance: CISPLATIN
     Dosage: GIVEN WITH IRINOTECAN
     Route: 065
     Dates: start: 201409, end: 201410
  6. IRINOTECAN [Concomitant]
     Active Substance: IRINOTECAN
     Dosage: GIVEN WITH CISPLATIN
     Route: 065
     Dates: start: 201409, end: 201410
  7. TAXOL [Concomitant]
     Active Substance: PACLITAXEL
     Dosage: GIVEN WITH CISPLATIN
     Route: 065
     Dates: start: 200803, end: 200806
  8. AVASTIN [Suspect]
     Active Substance: BEVACIZUMAB
     Indication: OVARIAN CANCER STAGE III
     Route: 065
     Dates: start: 201201, end: 201206
  9. PEMETREXED [Concomitant]
     Active Substance: PEMETREXED
     Indication: OVARIAN CANCER STAGE III
     Route: 065
     Dates: start: 201201, end: 201206
  10. COTRIMOXAZOLE [Concomitant]
     Active Substance: SULFAMETHOXAZOLE\TRIMETHOPRIM
     Indication: OVARIAN CANCER STAGE III
     Route: 065
     Dates: start: 201206, end: 201307
  11. OXYCODONE [Concomitant]
     Active Substance: OXYCODONE
  12. CISPLATIN. [Concomitant]
     Active Substance: CISPLATIN
     Dosage: GIVEN WITH TAXOL
     Route: 065
     Dates: start: 200711, end: 200802
  13. ATIVAN [Concomitant]
     Active Substance: LORAZEPAM
  14. FENTANYL. [Concomitant]
     Active Substance: FENTANYL
     Route: 065
  15. GEMCITABINE [Concomitant]
     Active Substance: GEMCITABINE\GEMCITABINE HYDROCHLORIDE
     Dosage: GEMCITABINE X 5 GIVEN WITH CARBOPLATIN
     Route: 065
     Dates: start: 200909, end: 201001
  16. CISPLATIN. [Concomitant]
     Active Substance: CISPLATIN
     Dosage: GIVEN WITH TAXOL
     Route: 065
     Dates: start: 201411, end: 201412
  17. PEGYLATED LIPOSOMAL DOXORUBICIN [Concomitant]
     Active Substance: DOXORUBICIN
     Route: 065
     Dates: start: 201308, end: 201404
  18. TAXOL [Concomitant]
     Active Substance: PACLITAXEL
     Dosage: GIVEN WITH CISPLATIN
     Route: 065
     Dates: start: 200711, end: 200802
  19. LACTULOSE. [Concomitant]
     Active Substance: LACTULOSE
     Route: 065
  20. CARBOPLATIN. [Concomitant]
     Active Substance: CARBOPLATIN
     Dosage: GIVEN WITH GEMCITABINE X5
     Route: 065
     Dates: start: 200909, end: 201001
  21. TAXOL [Concomitant]
     Active Substance: PACLITAXEL
     Indication: OVARIAN CANCER
     Route: 065
     Dates: start: 201406, end: 201409

REACTIONS (3)
  - Drug ineffective [Unknown]
  - Gene mutation [Unknown]
  - Carbohydrate antigen 125 increased [Unknown]

NARRATIVE: CASE EVENT DATE: 201406
